FAERS Safety Report 19242663 (Version 1)
Quarter: 2021Q2

REPORT INFORMATION
  Report Type: Spontaneous
  Country: US (occurrence: US)
  Receive Date: 20210511
  Receipt Date: 20210511
  Transmission Date: 20210717
  Serious: No
  Sender: FDA-Public Use
  Company Number: None

PATIENT
  Age: 29 Year
  Sex: Female
  Weight: 60.9 kg

DRUGS (4)
  1. INFLIXIMAB [Suspect]
     Active Substance: INFLIXIMAB
     Indication: CROHN^S DISEASE
     Dosage: ?          OTHER FREQUENCY:ONE TIME INFUSION;?
     Route: 041
     Dates: start: 20210506, end: 20210506
  2. SOLU?CORTEF 100 MG [Concomitant]
     Dates: start: 20210506, end: 20210506
  3. EPI PEN 0.3 MG [Concomitant]
     Dates: start: 20210506, end: 20210506
  4. BENADRYL 25 MG IVP [Concomitant]
     Dates: start: 20210506

REACTIONS (3)
  - Chest discomfort [None]
  - Flushing [None]
  - Dyspnoea [None]

NARRATIVE: CASE EVENT DATE: 20210506
